FAERS Safety Report 8837093 (Version 1)
Quarter: 2012Q4

REPORT INFORMATION
  Report Type: Spontaneous
  Country: US (occurrence: None)
  Receive Date: 20121011
  Receipt Date: 20121011
  Transmission Date: 20130627
  Serious: No
  Sender: FDA-Public Use
  Company Number: None

PATIENT
  Age: 63 Year
  Sex: Female
  Weight: 72.58 kg

DRUGS (2)
  1. BUPROPRION XL [Suspect]
     Indication: MOOD DISORDER NOS
     Dosage: one daily po
     Route: 048
     Dates: start: 20120601, end: 20120815
  2. BUPROPRION XL [Suspect]
     Indication: MULTIPLE SCLEROSIS
     Dosage: one daily po
     Route: 048
     Dates: start: 20120601, end: 20120815

REACTIONS (2)
  - Drug ineffective [None]
  - Product substitution issue [None]
